FAERS Safety Report 19751953 (Version 4)
Quarter: 2022Q1

REPORT INFORMATION
  Report Type: Spontaneous
  Country: JP (occurrence: JP)
  Receive Date: 20210827
  Receipt Date: 20220315
  Transmission Date: 20220423
  Serious: Yes (Death, Other)
  Sender: FDA-Public Use
  Company Number: JP-ACTELION-A-CH2017-161390

PATIENT
  Age: 67 Year
  Sex: Female
  Weight: 44 kg

DRUGS (16)
  1. OPSUMIT [Suspect]
     Active Substance: MACITENTAN
     Indication: Pulmonary arterial hypertension
     Dosage: 10 MG, QD
     Route: 048
     Dates: start: 20170111, end: 20210810
  2. OPSUMIT [Suspect]
     Active Substance: MACITENTAN
     Indication: Pulmonary arterial hypertension
     Dosage: 10 MG, QD
     Route: 048
     Dates: start: 20160810
  3. BISOPROLOL FUMARATE [Concomitant]
     Active Substance: BISOPROLOL FUMARATE
     Indication: Arrhythmia
     Dosage: 2.5 MG, QD
  4. BISOPROLOL FUMARATE [Concomitant]
     Active Substance: BISOPROLOL FUMARATE
     Indication: Atrial flutter
  5. DIGOXIN [Concomitant]
     Active Substance: DIGOXIN
     Indication: Arrhythmia
     Dosage: 0.125 MG, QD
     Route: 048
  6. DIGOXIN [Concomitant]
     Active Substance: DIGOXIN
     Indication: Atrial flutter
  7. WARFARIN [Concomitant]
     Active Substance: WARFARIN
     Indication: Arrhythmia
     Dosage: 2.5 MG, QD
     Route: 048
  8. WARFARIN [Concomitant]
     Active Substance: WARFARIN
     Indication: Atrial flutter
     Route: 048
  9. WARFARIN [Concomitant]
     Active Substance: WARFARIN
     Route: 048
  10. VONOPRAZAN FUMARATE [Concomitant]
     Active Substance: VONOPRAZAN FUMARATE
     Indication: Prophylaxis
     Dosage: 10 MG, QD
     Route: 048
     Dates: start: 20170305
  11. VONOPRAZAN FUMARATE [Concomitant]
     Active Substance: VONOPRAZAN FUMARATE
     Indication: Gastrooesophageal reflux disease
  12. ADCIRCA [Concomitant]
     Active Substance: TADALAFIL
     Indication: Pulmonary arterial hypertension
     Route: 048
     Dates: start: 20171021
  13. ADCIRCA [Concomitant]
     Active Substance: TADALAFIL
     Indication: Pulmonary arterial hypertension
  14. OXYGEN [Concomitant]
     Active Substance: OXYGEN
  15. UPTRAVI [Concomitant]
     Active Substance: SELEXIPAG
     Indication: Pulmonary arterial hypertension
     Route: 048
     Dates: start: 20170224
  16. UPTRAVI [Concomitant]
     Active Substance: SELEXIPAG
     Route: 048

REACTIONS (5)
  - Marasmus [Fatal]
  - Sudden cardiac death [Fatal]
  - Cardiac failure [Recovered/Resolved]
  - White blood cell count decreased [Not Recovered/Not Resolved]
  - Platelet count decreased [Not Recovered/Not Resolved]

NARRATIVE: CASE EVENT DATE: 20160916
